FAERS Safety Report 8554117-0 (Version None)
Quarter: 2012Q3

REPORT INFORMATION
  Report Type: 
  Country: None (occurrence: None)
  Receive Date: 20120731
  Receipt Date: 20120724
  Transmission Date: 20120928
  Serious: Yes (Hospitalization, Other)
  Sender: FDA-Public Use
  Company Number: PHHY2012CA060977

PATIENT
  Sex: Female

DRUGS (2)
  1. CLOZARIL [Suspect]
     Dosage: 225 MG, (HS)
  2. CLOZARIL [Suspect]
     Dosage: UNK UKN, UNK
     Dates: start: 20120319

REACTIONS (12)
  - PNEUMONIA [None]
  - DISORIENTATION [None]
  - OBESITY [None]
  - AGITATION [None]
  - LUNG DISORDER [None]
  - FALL [None]
  - AKATHISIA [None]
  - HYPOVENTILATION [None]
  - SEDATION [None]
  - CHRONIC OBSTRUCTIVE PULMONARY DISEASE [None]
  - RESPIRATORY DISTRESS [None]
  - HYPERVENTILATION [None]
